FAERS Safety Report 20587078 (Version 1)
Quarter: 2022Q1

REPORT INFORMATION
  Report Type: Spontaneous
  Country: KZ (occurrence: KZ)
  Receive Date: 20220314
  Receipt Date: 20220314
  Transmission Date: 20220423
  Serious: Yes (Other)
  Sender: FDA-Public Use
  Company Number: KZ-NOVOPROD-899053

PATIENT
  Sex: Female

DRUGS (2)
  1. LEVEMIR [Suspect]
     Active Substance: INSULIN DETEMIR
     Indication: Type 2 diabetes mellitus
     Dosage: 7 IU, QD(3 UNITS IN THE MORNING, 4 UNITS IN THE EVENIN)
     Route: 065
  2. NOVORAPID [Suspect]
     Active Substance: INSULIN ASPART
     Indication: Type 2 diabetes mellitus
     Dosage: 27 IU, QD(10 UNITS AT BREAKFAST, 10 UNITS AT LUNCH, 7 UNITS AT DINNER)
     Route: 065

REACTIONS (2)
  - Diabetic metabolic decompensation [Unknown]
  - Maternal exposure during pregnancy [Not Recovered/Not Resolved]
